FAERS Safety Report 8572262-0 (Version None)
Quarter: 2012Q3

REPORT INFORMATION
  Report Type: 
  Country: None (occurrence: None)
  Receive Date: 20120806
  Receipt Date: 20120726
  Transmission Date: 20120928
  Serious: Yes (Other)
  Sender: FDA-Public Use
  Company Number: US-009507513-2012SP023676

PATIENT

DRUGS (4)
  1. COPEGUS [Suspect]
     Route: 048
  2. COPEGUS [Suspect]
     Route: 048
  3. PEGASYS [Suspect]
     Route: 058
  4. VICTRELIS [Suspect]

REACTIONS (19)
  - PAIN IN JAW [None]
  - DYSPNOEA [None]
  - MUSCULOSKELETAL DISCOMFORT [None]
  - CYSTITIS RADIATION [None]
  - NERVE INJURY [None]
  - BACK PAIN [None]
  - EMOTIONAL DISORDER [None]
  - SYNCOPE [None]
  - BLOOD URINE PRESENT [None]
  - CYST [None]
  - ABDOMINAL PAIN LOWER [None]
  - IRRITABILITY [None]
  - INSOMNIA [None]
  - ARTHRALGIA [None]
  - PAIN [None]
  - HAEMOGLOBIN DECREASED [None]
  - FULL BLOOD COUNT DECREASED [None]
  - JOINT INJURY [None]
  - FATIGUE [None]
